FAERS Safety Report 13959981 (Version 6)
Quarter: 2018Q1

REPORT INFORMATION
  Report Type: Report from Study
  Country: US (occurrence: US)
  Receive Date: 20170912
  Receipt Date: 20180119
  Transmission Date: 20180508
  Serious: Yes (Hospitalization, Disabling)
  Sender: FDA-Public Use
  Company Number: PHEH2017US028612

PATIENT
  Age: 65 Year
  Sex: Female

DRUGS (4)
  1. COSENTYX [Suspect]
     Active Substance: SECUKINUMAB
     Indication: PSORIASIS
     Dosage: 300 MG, QW
     Route: 058
     Dates: start: 20170730
  2. COSENTYX [Suspect]
     Active Substance: SECUKINUMAB
     Dosage: 300 MG, QW
     Route: 058
     Dates: start: 20170828
  3. COSENTYX [Suspect]
     Active Substance: SECUKINUMAB
     Dosage: 300 MG, QMO
     Route: 058
  4. CYCLOSPORIN [Concomitant]
     Active Substance: CYCLOSPORINE
     Indication: PRODUCT USED FOR UNKNOWN INDICATION
     Dosage: UNK
     Route: 065

REACTIONS (16)
  - Feeling abnormal [Unknown]
  - Infection [Unknown]
  - Dysphonia [Not Recovered/Not Resolved]
  - Sinusitis [Unknown]
  - Pyrexia [Recovered/Resolved]
  - Blood pressure increased [Not Recovered/Not Resolved]
  - Gait disturbance [Unknown]
  - Dyspnoea [Recovering/Resolving]
  - Feeling cold [Unknown]
  - Cold sweat [Recovering/Resolving]
  - Skin mass [Not Recovered/Not Resolved]
  - Urticaria [Not Recovered/Not Resolved]
  - Chills [Recovered/Resolved]
  - Pyrexia [Not Recovered/Not Resolved]
  - Tremor [Unknown]
  - Psoriasis [Not Recovered/Not Resolved]

NARRATIVE: CASE EVENT DATE: 20170806
